FAERS Safety Report 5198723-2 (Version None)
Quarter: 2007Q1

REPORT INFORMATION
  Report Type: 
  Country: None (occurrence: None)
  Receive Date: 20070104
  Receipt Date: 20061228
  Transmission Date: 20070707
  Serious: Yes (Hospitalization)
  Sender: FDA-Public Use
  Company Number: US-GLAXOSMITHKLINE-A0632866A

PATIENT
  Sex: Female

DRUGS (10)
  1. IMITREX [Suspect]
     Indication: MIGRAINE
     Dosage: 1INJ AS REQUIRED
     Route: 058
  2. HYDROXYZINE PAMOATE [Concomitant]
  3. AMBIEN [Concomitant]
  4. ALPRAZOLAM [Concomitant]
  5. ALBUTEROL [Concomitant]
  6. MSIR [Concomitant]
  7. KADIAN [Concomitant]
  8. REQUIP [Concomitant]
  9. COMBIVENT [Concomitant]
  10. RANITIDINE [Concomitant]

REACTIONS (6)
  - BODY TEMPERATURE INCREASED [None]
  - ILL-DEFINED DISORDER [None]
  - INFECTION [None]
  - MASS [None]
  - PHARMACEUTICAL PRODUCT COMPLAINT [None]
  - SWELLING [None]
